FAERS Safety Report 6969182-1 (Version None)
Quarter: 2010Q3

REPORT INFORMATION
  Report Type: 
  Country: None (occurrence: None)
  Receive Date: 20100907
  Receipt Date: 20100831
  Transmission Date: 20110219
  Serious: Yes (Disabling, Other)
  Sender: FDA-Public Use
  Company Number: PHHY2010EG50955

PATIENT
  Sex: Male
  Weight: 72 kg

DRUGS (5)
  1. ZOMETA [Suspect]
     Indication: MULTIPLE MYELOMA
     Dosage: 4 MG, QMO
     Route: 042
     Dates: start: 20091005, end: 20100601
  2. THALIDOMIDE [Concomitant]
     Dosage: UNK
  3. PREDNISONE [Concomitant]
     Dosage: UNK
  4. CHEMOTHERAPEUTICS NOS [Concomitant]
  5. CORTISONE ACETATE [Concomitant]

REACTIONS (4)
  - BONE DISORDER [None]
  - OSTEITIS [None]
  - OSTEONECROSIS OF JAW [None]
  - TOOTH EXTRACTION [None]
